FAERS Safety Report 6180474-9 (Version None)
Quarter: 2009Q2

REPORT INFORMATION
  Report Type: 
  Country: None (occurrence: None)
  Receive Date: 20090506
  Receipt Date: 20090430
  Transmission Date: 20091009
  Serious: Yes (Death, Hospitalization)
  Sender: FDA-Public Use
  Company Number: PHHY2009ES16563

PATIENT

DRUGS (3)
  1. EVEROLIMUS [Suspect]
     Indication: HEART TRANSPLANT
  2. TACROLIMUS [Concomitant]
     Indication: HEART TRANSPLANT
  3. STEROIDS NOS [Concomitant]

REACTIONS (9)
  - ATRIAL FIBRILLATION [None]
  - CORONARY ARTERY DISEASE [None]
  - ELECTROMECHANICAL DISSOCIATION [None]
  - HEAD INJURY [None]
  - HEART TRANSPLANT REJECTION [None]
  - HYPOTENSION [None]
  - IMPLANTABLE DEFIBRILLATOR INSERTION [None]
  - SYNCOPE [None]
  - VENTRICULAR TACHYCARDIA [None]
